FAERS Safety Report 4555638-8 (Version None)
Quarter: 2005Q1

REPORT INFORMATION
  Report Type: 
  Country: None (occurrence: None)
  Receive Date: 20050119
  Receipt Date: 20041221
  Transmission Date: 20050727
  Serious: Yes (Hospitalization)
  Sender: FDA-Public Use
  Company Number: US-JNJFOC-20041205862

PATIENT
  Sex: Female

DRUGS (3)
  1. DURAGESIC [Suspect]
     Route: 062
     Dates: start: 20041110, end: 20041216
  2. HYDROCODONE [Concomitant]
     Indication: PAIN
     Route: 049
  3. ALBUTEROL [Concomitant]
     Route: 055

REACTIONS (4)
  - BRADYCARDIA [None]
  - CARDIAC ARREST [None]
  - SWELLING [None]
  - URINARY RETENTION [None]
